FAERS Safety Report 6989076-5 (Version None)
Quarter: 2010Q3

REPORT INFORMATION
  Report Type: 
  Country: None (occurrence: None)
  Receive Date: 20100916
  Receipt Date: 20100910
  Transmission Date: 20110219
  Serious: Yes (Hospitalization)
  Sender: FDA-Public Use
  Company Number: GB-AMGEN-KDC437591

PATIENT
  Sex: Male

DRUGS (10)
  1. VECTIBIX [Suspect]
     Indication: GASTROOESOPHAGEAL CANCER
     Dates: start: 20100625, end: 20100626
  2. OXALIPLATIN [Suspect]
     Dates: start: 20100625, end: 20100626
  3. CAPECITABINE [Suspect]
     Dates: start: 20100625, end: 20100626
  4. EPIRUBICIN [Suspect]
     Dates: start: 20100625, end: 20100626
  5. NULYTELY [Concomitant]
     Dates: start: 20100528, end: 20100715
  6. SOLPADOL [Concomitant]
     Dates: start: 20100528, end: 20100702
  7. ZIMOVANE [Concomitant]
     Dates: start: 20100528, end: 20100729
  8. LOPERAMIDE [Concomitant]
     Dates: start: 20100626, end: 20100708
  9. DOMPERIDONE [Concomitant]
     Dates: start: 20100626, end: 20100627
  10. CODEINE PHOSPHATE [Concomitant]
     Dates: start: 20100629, end: 20100705

REACTIONS (3)
  - DEEP VEIN THROMBOSIS [None]
  - MEDICAL DEVICE COMPLICATION [None]
  - PULMONARY EMBOLISM [None]
